FAERS Safety Report 25746114 (Version 1)
Quarter: 2025Q3

REPORT INFORMATION
  Report Type: Spontaneous
  Country: US (occurrence: US)
  Receive Date: 20250901
  Receipt Date: 20250901
  Transmission Date: 20251021
  Serious: No
  Sender: SUNOVION
  Company Number: US-SMPA-2025SPA010900

PATIENT
  Age: 69 Year
  Sex: Male

DRUGS (17)
  1. ORGOVYX [Suspect]
     Active Substance: RELUGOLIX
     Indication: Prostate cancer
     Route: 048
  2. ORGOVYX [Suspect]
     Active Substance: RELUGOLIX
     Route: 048
  3. ALENDRONATE SODIUM [Concomitant]
     Active Substance: ALENDRONATE SODIUM
  4. ASPIRIN [Concomitant]
     Active Substance: ASPIRIN
  5. ATORVASTATIN [Concomitant]
     Active Substance: ATORVASTATIN
  6. VITAMIN B COMPLEX [Concomitant]
     Active Substance: CYANOCOBALAMIN\DEXPANTHENOL\NIACINAMIDE\PYRIDOXINE HYDROCHLORIDE\RIBOFLAVIN 5^-PHOSPHATE SODIUM\THIA
  7. VITAMINS [Concomitant]
     Active Substance: VITAMINS
  8. COLLAGENASE SANTYL [Concomitant]
     Active Substance: COLLAGENASE CLOSTRIDIUM HISTOLYTICUM
  9. DIAZEPAM [Concomitant]
     Active Substance: DIAZEPAM
  10. ELIQUIS [Concomitant]
     Active Substance: APIXABAN
  11. FLUTICASONE [Concomitant]
     Active Substance: FLUTICASONE
  12. CALCIUM [Concomitant]
     Active Substance: CALCIUM
  13. HYDROCORTISONE [Concomitant]
     Active Substance: HYDROCORTISONE
  14. LORATADINE [Concomitant]
     Active Substance: LORATADINE
  15. METRONIDAZOLE [Concomitant]
     Active Substance: METRONIDAZOLE
  16. TRIAMCINOLONE [Concomitant]
     Active Substance: TRIAMCINOLONE
  17. VITAMIN D3 [Concomitant]
     Active Substance: CHOLECALCIFEROL

REACTIONS (2)
  - Hot flush [Unknown]
  - Insomnia [Unknown]
